FAERS Safety Report 22309712 (Version 3)
Quarter: 2025Q3

REPORT INFORMATION
  Report Type: Spontaneous
  Country: EU (occurrence: EU)
  Receive Date: 20230511
  Receipt Date: 20250917
  Transmission Date: 20251021
  Serious: Yes (Other)
  Sender: PFIZER
  Company Number: EU-PFIZER INC-PV202300077620

PATIENT
  Age: 73 Year
  Sex: Male

DRUGS (2)
  1. PAXLOVID [Interacting]
     Active Substance: NIRMATRELVIR\RITONAVIR
     Indication: Post-acute COVID-19 syndrome
  2. COLCHICINE [Interacting]
     Active Substance: COLCHICINE
     Indication: Gout
     Dosage: 1 DF, 2X/DAY (ONE TAB MORNING AND ONE TAB EVENING)

REACTIONS (6)
  - Drug interaction [Recovered/Resolved]
  - Gout [Recovered/Resolved]
  - Symptom recurrence [Unknown]
  - Memory impairment [Unknown]
  - Off label use [Unknown]
  - Drug effective for unapproved indication [Unknown]
